FAERS Safety Report 4390290-6 (Version None)
Quarter: 2004Q2

REPORT INFORMATION
  Report Type: 
  Country: None (occurrence: None)
  Receive Date: 20040630
  Receipt Date: 20040618
  Transmission Date: 20050107
  Serious: Yes (Hospitalization, Other)
  Sender: FDA-Public Use
  Company Number: HQWYE814111MAY04

PATIENT
  Age: 50 Year
  Sex: Male

DRUGS (12)
  1. RAPAMUNE [Suspect]
     Indication: PROPHYLAXIS AGAINST TRANSPLANT REJECTION
     Dosage: 6 MG 1X PER 1 DAY, ORAL
     Route: 048
     Dates: start: 20030318
  2. PREDNISONE [Concomitant]
  3. ATORVASTATIN CALCIUM [Concomitant]
  4. ALLOPURINOL [Concomitant]
  5. TENORMIN [Concomitant]
  6. CARDURA [Concomitant]
  7. COZAAR [Concomitant]
  8. SOPORIL (PROMETHAZINE HYDROCHLORIDE) [Concomitant]
  9. ARANESP [Concomitant]
  10. FERROGRADUMET (FEROUS SULFATE) [Concomitant]
  11. HIGROTONA (CHLORTALIDONE) [Concomitant]
  12. RAPAMUNE [Suspect]
     Dosage: 2 MG 1X PER 1 DAY, ORAL
     Route: 048
     Dates: end: 20040513

REACTIONS (4)
  - BACTERIAL FOOD POISONING [None]
  - KIDNEY TRANSPLANT REJECTION [None]
  - RENAL IMPAIRMENT [None]
  - SALMONELLOSIS [None]
